FAERS Safety Report 6115938-7 (Version None)
Quarter: 2009Q1

REPORT INFORMATION
  Report Type: 
  Country: None (occurrence: None)
  Receive Date: 20090311
  Receipt Date: 20090309
  Transmission Date: 20090719
  Serious: Yes (Hospitalization)
  Sender: FDA-Public Use
  Company Number: 2009SP004073

PATIENT
  Age: 50 Year
  Sex: Male
  Weight: 64 kg

DRUGS (6)
  1. PEG-INTRON [Suspect]
     Indication: HEPATITIS C
     Dosage: 100 MCG;QW;SC, 60 MCG;QW;SC, 60 MCG;QW;SC, 50 MCG;QW;SC
     Route: 058
     Dates: start: 20090113, end: 20090119
  2. PEG-INTRON [Suspect]
     Indication: HEPATITIS C
     Dosage: 100 MCG;QW;SC, 60 MCG;QW;SC, 60 MCG;QW;SC, 50 MCG;QW;SC
     Route: 058
     Dates: start: 20090120, end: 20090209
  3. PEG-INTRON [Suspect]
     Indication: HEPATITIS C
     Dosage: 100 MCG;QW;SC, 60 MCG;QW;SC, 60 MCG;QW;SC, 50 MCG;QW;SC
     Route: 058
     Dates: start: 20090224
  4. PEG-INTRON [Suspect]
     Indication: HEPATITIS C
     Dosage: 100 MCG;QW;SC, 60 MCG;QW;SC, 60 MCG;QW;SC, 50 MCG;QW;SC
     Route: 058
     Dates: start: 20090303
  5. REBETOL [Suspect]
     Indication: HEPATITIS C
     Dosage: 800 MG;QD;PO, 800 MG;QD;PO
     Route: 048
     Dates: start: 20090113, end: 20090209
  6. REBETOL [Suspect]
     Indication: HEPATITIS C
     Dosage: 800 MG;QD;PO, 800 MG;QD;PO
     Route: 048
     Dates: start: 20090224

REACTIONS (2)
  - ASTHENIA [None]
  - ATRIOVENTRICULAR BLOCK COMPLETE [None]
